FAERS Safety Report 13901648 (Version 6)
Quarter: 2017Q4

REPORT INFORMATION
  Report Type: Report from Study
  Country: US (occurrence: US)
  Receive Date: 20170824
  Receipt Date: 20171222
  Transmission Date: 20180320
  Serious: Yes (Hospitalization)
  Sender: FDA-Public Use
  Company Number: US-ROCHE-1978931

PATIENT
  Age: 55 Year
  Sex: Male
  Weight: 85.3 kg

DRUGS (24)
  1. OCRELIZUMAB. [Suspect]
     Active Substance: OCRELIZUMAB
     Indication: PRIMARY PROGRESSIVE MULTIPLE SCLEROSIS
     Dosage: TWO IV INFUSIONS OF OCRELIZUMAB 300 MG SEPARATED BY 14 DAYS FOR CYCLE 1 AND SINGLE IV INFUSION OF OC
     Route: 042
     Dates: start: 20160216
  2. BACLOFEN. [Concomitant]
     Active Substance: BACLOFEN
     Route: 048
  3. VITAMIN B12 [Concomitant]
     Active Substance: CYANOCOBALAMIN
     Route: 065
     Dates: start: 20141228
  4. BACLOFEN. [Concomitant]
     Active Substance: BACLOFEN
     Route: 065
     Dates: start: 20131015, end: 20131019
  5. PAROXETINE. [Concomitant]
     Active Substance: PAROXETINE
     Route: 065
     Dates: start: 20150516, end: 20150828
  6. OCRELIZUMAB. [Suspect]
     Active Substance: OCRELIZUMAB
     Indication: PRIMARY PROGRESSIVE MULTIPLE SCLEROSIS
     Dosage: 300 MILLIGRAMS (MG) SEPARATED BY 14 DAYS IN EACH TREATMENT CYCLE OF 24 WEEK (FREQUENCY AS PER PROTOC
     Route: 042
     Dates: start: 20120611, end: 20160215
  7. BACLOFEN. [Concomitant]
     Active Substance: BACLOFEN
     Route: 065
     Dates: start: 20130419, end: 20131014
  8. LEVAQUIN [Concomitant]
     Active Substance: LEVOFLOXACIN
     Route: 048
  9. FLU VACCINE [Concomitant]
     Active Substance: INFLUENZA VIRUS VACCINE
     Route: 065
     Dates: start: 20170915, end: 20170915
  10. DIPHENHYDRAMINE. [Concomitant]
     Active Substance: DIPHENHYDRAMINE
     Indication: PREMEDICATION
     Dosage: SUBSEQUENT DOSES RECEIVED ON 25/JUN/2012, 26/NOV/2012, 10/DEC/2012, 14/MAY/2013, 28/MAY/2013, 29/OCT
     Route: 065
     Dates: start: 20120611
  11. METHYLPREDNISOLONE. [Concomitant]
     Active Substance: METHYLPREDNISOLONE
     Indication: PREMEDICATION
     Dosage: SUBSEQUENT DOSES RECEIVED ON 25/JUN/2012, 26/NOV/2012, 10/DEC/2012, 14/MAY/2013, 28/MAY/2013, 29/OCT
     Route: 065
     Dates: start: 20120611
  12. AMPYRA [Concomitant]
     Active Substance: DALFAMPRIDINE
     Indication: MUSCLE SPASTICITY
     Dosage: FOR MS SYMPTOMS- SPASTICITY
     Route: 065
     Dates: start: 20140806
  13. BACLOFEN. [Concomitant]
     Active Substance: BACLOFEN
     Indication: MUSCLE SPASTICITY
     Route: 065
     Dates: start: 20131020
  14. FISH OIL [Concomitant]
     Active Substance: FISH OIL
     Route: 065
     Dates: start: 201202
  15. ACETAMINOPHEN. [Concomitant]
     Active Substance: ACETAMINOPHEN
     Indication: PREMEDICATION
     Dosage: SUBSEQUENT DOSES RECEIVED ON 25/JUN/2012, 26/NOV/2012, 10/DEC/2012, 14/MAY/2013, 28/MAY/2013, 29/OCT
     Route: 065
     Dates: start: 20120611
  16. EXCEDRIN (UNITED STATES) [Concomitant]
     Indication: HEADACHE
     Route: 065
     Dates: start: 2009
  17. OMEGA 3 [Concomitant]
     Active Substance: OMEGA-3 FATTY ACIDS
     Route: 048
  18. AMPYRA [Concomitant]
     Active Substance: DALFAMPRIDINE
     Route: 048
  19. VITAMIN D3 [Concomitant]
     Active Substance: CHOLECALCIFEROL
     Route: 048
     Dates: start: 20120415
  20. SALINE [Concomitant]
     Active Substance: SODIUM CHLORIDE
     Indication: COLITIS
     Route: 042
     Dates: start: 20170809, end: 20170814
  21. BACLOFEN. [Concomitant]
     Active Substance: BACLOFEN
     Route: 048
     Dates: start: 20121214, end: 20130419
  22. PAROXETINE. [Concomitant]
     Active Substance: PAROXETINE
     Indication: DEPRESSION
     Route: 065
     Dates: start: 20150829
  23. VITAMIN B12 [Concomitant]
     Active Substance: CYANOCOBALAMIN
     Route: 048
  24. SALINE [Concomitant]
     Active Substance: SODIUM CHLORIDE
     Indication: SQUAMOUS CELL CARCINOMA
     Route: 042
     Dates: start: 20170601, end: 20170601

REACTIONS (1)
  - Infectious colitis [Recovered/Resolved]

NARRATIVE: CASE EVENT DATE: 20170804
